FAERS Safety Report 25285006 (Version 1)
Quarter: 2025Q2

REPORT INFORMATION
  Report Type: Spontaneous
  Country: US (occurrence: US)
  Receive Date: 20250508
  Receipt Date: 20250508
  Transmission Date: 20250717
  Serious: Yes (Other)
  Sender: SANOFI AVENTIS
  Company Number: US-SA-2025SA132639

PATIENT
  Age: 70 Year
  Sex: Male

DRUGS (1)
  1. DUPIXENT [Suspect]
     Active Substance: DUPILUMAB
     Indication: Asthma
     Dosage: 300 MG, QOW
     Route: 058

REACTIONS (8)
  - Neuropathy peripheral [Unknown]
  - Fall [Unknown]
  - Constipation [Unknown]
  - Rosacea [Unknown]
  - Dizziness [Unknown]
  - Balance disorder [Unknown]
  - Diarrhoea [Unknown]
  - Sinusitis [Unknown]
